FAERS Safety Report 14003263 (Version 1)
Quarter: 2017Q3

REPORT INFORMATION
  Report Type: Spontaneous
  Country: FR (occurrence: FR)
  Receive Date: 20170922
  Receipt Date: 20170922
  Transmission Date: 20171128
  Serious: Yes (Other)
  Sender: FDA-Public Use
  Company Number: FR-ACCORD-059091

PATIENT
  Age: 67 Year
  Sex: Male

DRUGS (1)
  1. OXALIPLATIN ACCORD [Suspect]
     Active Substance: OXALIPLATIN
     Indication: BILE DUCT CANCER
     Route: 042
     Dates: start: 20170802, end: 20170802

REACTIONS (3)
  - Hypersensitivity [Recovered/Resolved]
  - Tremor [Recovered/Resolved]
  - Off label use [Unknown]

NARRATIVE: CASE EVENT DATE: 20170802
